FAERS Safety Report 5512392-0 (Version None)
Quarter: 2007Q4

REPORT INFORMATION
  Report Type: 
  Country: None (occurrence: None)
  Receive Date: 20071112
  Receipt Date: 20071108
  Transmission Date: 20080405
  Serious: Yes (Life-Threatening, Hospitalization)
  Sender: FDA-Public Use
  Company Number: DE-JNJFOC-20071102990

PATIENT
  Sex: Male
  Weight: 80 kg

DRUGS (5)
  1. REOPRO [Suspect]
     Indication: STENT PLACEMENT
     Route: 042
  2. REOPRO [Suspect]
     Indication: MYOCARDIAL INFARCTION
     Route: 042
  3. CLOPIDOGREL [Suspect]
     Indication: STENT PLACEMENT
  4. CLOPIDOGREL [Suspect]
     Indication: CORONARY ARTERY DISEASE
  5. SIMVASTATIN [Concomitant]
     Indication: CORONARY ARTERY DISEASE

REACTIONS (3)
  - ALVEOLITIS [None]
  - PULMONARY OEDEMA [None]
  - THROMBOCYTOPENIA [None]
